FAERS Safety Report 8043695-6 (Version None)
Quarter: 2012Q1

REPORT INFORMATION
  Report Type: 
  Country: None (occurrence: None)
  Receive Date: 20120112
  Receipt Date: 20120106
  Transmission Date: 20120608
  Serious: Yes (Other)
  Sender: FDA-Public Use
  Company Number: FR-ROCHE-1028524

PATIENT
  Sex: Female

DRUGS (5)
  1. ROCEPHIN [Suspect]
     Indication: TONSILLITIS
     Route: 042
     Dates: start: 19980828
  2. ROVAMYCINE [Concomitant]
     Dates: start: 20000101
  3. AMOXICILLIN AND CLAVULANATE POTASSIUM [Concomitant]
     Indication: TONSILLITIS
     Dates: start: 19980828
  4. AMOXICILLIN AND CLAVULANATE POTASSIUM [Concomitant]
     Indication: IMPETIGO
  5. ROCEPHIN [Suspect]
     Indication: IMPETIGO
     Route: 042
     Dates: start: 20110921

REACTIONS (3)
  - RASH MACULO-PAPULAR [None]
  - SKIN TEST NEGATIVE [None]
  - ECZEMA [None]
